FAERS Safety Report 9372175 (Version 3)
Quarter: 2013Q3

REPORT INFORMATION
  Report Type: Spontaneous
  Country: FR (occurrence: FR)
  Receive Date: 20130627
  Receipt Date: 20130719
  Transmission Date: 20140515
  Serious: Yes (Life-Threatening, Other)
  Sender: FDA-Public Use
  Company Number: FR-PFIZER INC-2013191199

PATIENT
  Age: 88 Year
  Sex: Male

DRUGS (13)
  1. ZYVOXID [Suspect]
     Indication: URINARY TRACT INFECTION
     Dosage: UNK
     Route: 041
     Dates: start: 20130530, end: 20130531
  2. ZYVOXID [Suspect]
     Indication: URINARY TRACT INFECTION
     Dosage: 600 MG, 2X/DAY
     Route: 048
     Dates: start: 20130531, end: 20130611
  3. FLAGYL [Suspect]
     Indication: PSEUDOMEMBRANOUS COLITIS
     Dosage: 500 MG, 2X/DAY
     Dates: start: 20130530, end: 20130607
  4. SEROPLEX [Suspect]
     Dosage: 10 MG, 1X/DAY
     Route: 048
     Dates: end: 20130607
  5. AUGMENTIN [Concomitant]
     Indication: ENTEROCOCCAL INFECTION
     Dosage: UNK
     Dates: start: 20130525, end: 20130530
  6. LANTUS [Concomitant]
     Dosage: 10 IU, 1X/DAY (IN THE MORNING)
  7. PREVISCAN [Concomitant]
     Dosage: 1 TABLET DAILY
     Route: 048
  8. PRAVASTATIN [Concomitant]
     Dosage: 20 MG, 1X/DAY
  9. CARDENSIEL [Concomitant]
     Dosage: 2.5 MG, 1X/DAY
  10. LASILIX [Concomitant]
     Dosage: 40 MG
  11. INEXIUM [Concomitant]
     Dosage: 20 MG, 1X/DAY
  12. LEVOTHYROX [Concomitant]
     Dosage: 1 DF, DAILY
  13. ECONAZOLE [Concomitant]

REACTIONS (3)
  - Toxic encephalopathy [Recovered/Resolved]
  - Clonus [Recovered/Resolved]
  - Asterixis [Recovered/Resolved]
